FAERS Safety Report 5709837-X (Version None)
Quarter: 2008Q2

REPORT INFORMATION
  Report Type: 
  Country: None (occurrence: None)
  Receive Date: 20080418
  Receipt Date: 20070501
  Transmission Date: 20081010
  Serious: No
  Sender: FDA-Public Use
  Company Number: US-ASTRAZENECA-2007UW06765

PATIENT
  Age: 53 Year
  Sex: Male

DRUGS (4)
  1. TOPROL-XL [Suspect]
     Route: 048
  2. NORVASC [Concomitant]
  3. CATAPRES-TTS-2 [Concomitant]
  4. LISINOPRIL [Concomitant]

REACTIONS (1)
  - BLOOD POTASSIUM DECREASED [None]
